FAERS Safety Report 19133668 (Version 1)
Quarter: 2021Q2

REPORT INFORMATION
  Report Type: Spontaneous
  Country: US (occurrence: US)
  Receive Date: 20210413
  Receipt Date: 20210413
  Transmission Date: 20210717
  Serious: Yes (Hospitalization)
  Sender: FDA-Public Use
  Company Number: None

PATIENT
  Age: 78 Year
  Sex: Female

DRUGS (19)
  1. FLOVENT HFA [Concomitant]
     Active Substance: FLUTICASONE PROPIONATE
  2. BIOTIN [Concomitant]
     Active Substance: BIOTIN
  3. ESTRADIOL. [Concomitant]
     Active Substance: ESTRADIOL
  4. SPIRIVA HANDIHLR [Concomitant]
  5. IPRATROPIUM/SOL ALBUTER [Concomitant]
  6. MIRTAZAPINE. [Concomitant]
     Active Substance: MIRTAZAPINE
  7. MULTIPLE VIT [Concomitant]
  8. VITAMIN B12 [Concomitant]
     Active Substance: CYANOCOBALAMIN
  9. AMANTADINE. [Concomitant]
     Active Substance: AMANTADINE HYDROCHLORIDE
  10. IPRATROPIUM SPR [Concomitant]
  11. PEPCID AC [Concomitant]
     Active Substance: FAMOTIDINE
  12. HYPERSAL NEB [Concomitant]
  13. ATROVENT HFA [Concomitant]
     Active Substance: IPRATROPIUM BROMIDE
  14. LEXAPRO [Concomitant]
     Active Substance: ESCITALOPRAM OXALATE
  15. MAGNESIUM GLUCONAT [Concomitant]
  16. TOBRAMYCIN 300MG/5ML TOBI GEQ [Suspect]
     Active Substance: TOBRAMYCIN
     Indication: BRONCHIECTASIS
     Dosage: ?          OTHER FREQUENCY:BID?QOM;?
     Route: 055
     Dates: start: 20200911
  17. AZITHROMYCIN ANHYDROUS. [Concomitant]
     Active Substance: AZITHROMYCIN ANHYDROUS
  18. SYNTHROID [Concomitant]
     Active Substance: LEVOTHYROXINE SODIUM
  19. VITAMIN D3 [Concomitant]
     Active Substance: CHOLECALCIFEROL

REACTIONS (1)
  - Mycobacterium avium complex infection [None]

NARRATIVE: CASE EVENT DATE: 20210329
